FAERS Safety Report 8480714-7 (Version None)
Quarter: 2012Q3

REPORT INFORMATION
  Report Type: 
  Country: None (occurrence: None)
  Receive Date: 20120702
  Receipt Date: 20120622
  Transmission Date: 20120928
  Serious: Yes (Hospitalization, Other)
  Sender: FDA-Public Use
  Company Number: JP-BRISTOL-MYERS SQUIBB COMPANY-16640021

PATIENT
  Age: 55 Year
  Sex: Male

DRUGS (6)
  1. ATELEC [Suspect]
     Indication: HYPERTENSION
     Route: 048
     Dates: start: 20120201, end: 20120412
  2. FLUCONAZOLE [Suspect]
     Indication: CRYPTOCOCCOSIS
     Dosage: 12NOV-21NOV2011: 800 MG(10 DYS). 22NOV2011-ONGOING 400 MG(199 DYS)
     Route: 048
     Dates: start: 20111112, end: 20120607
  3. DOXAZOSIN MESYLATE [Concomitant]
     Indication: HYPERTENSION
     Route: 048
     Dates: start: 20120412
  4. AVAPRO [Suspect]
     Indication: HYPERTENSION
     Route: 048
     Dates: start: 20111221, end: 20120511
  5. ENALAPRIL MALEATE [Suspect]
     Indication: HYPERTENSION
     Route: 048
     Dates: start: 20120101, end: 20120511
  6. LEVOTHYROXINE SODIUM [Suspect]
     Indication: EUTHYROID SICK SYNDROME
     Route: 048

REACTIONS (1)
  - TUBULOINTERSTITIAL NEPHRITIS [None]
